FAERS Safety Report 6840420-9 (Version None)
Quarter: 2010Q3

REPORT INFORMATION
  Report Type: 
  Country: None (occurrence: None)
  Receive Date: 20100714
  Receipt Date: 20100705
  Transmission Date: 20110219
  Serious: Yes (Hospitalization)
  Sender: FDA-Public Use
  Company Number: GXKR2010FR06865

PATIENT
  Sex: Female

DRUGS (6)
  1. PACLITAXEL EBEWE (NGX) [Suspect]
     Indication: OVARIAN CANCER
     Dosage: 335 MG, QD
     Route: 042
     Dates: start: 20100525, end: 20100525
  2. RANITIDINE HCL [Suspect]
     Indication: PREMEDICATION
     Dosage: 1 DF, QD
     Route: 042
     Dates: start: 20100525, end: 20100525
  3. CARBOPLATIN [Concomitant]
     Dosage: UNK
     Dates: start: 20100525, end: 20100525
  4. ZOPHREN [Concomitant]
     Dosage: UNK
     Dates: start: 20100525, end: 20100525
  5. POLARAMINE [Concomitant]
     Dosage: UNK
     Dates: start: 20100525, end: 20100525
  6. METHYLPREDNISOLONE [Concomitant]
     Dosage: UNK
     Dates: start: 20100525, end: 20100525

REACTIONS (4)
  - FATIGUE [None]
  - HYPERTENSION [None]
  - PRURITUS [None]
  - TREMOR [None]
